FAERS Safety Report 7364032-6 (Version None)
Quarter: 2011Q1

REPORT INFORMATION
  Report Type: 
  Country: None (occurrence: None)
  Receive Date: 20110321
  Receipt Date: 20110307
  Transmission Date: 20110831
  Serious: Yes (Hospitalization)
  Sender: FDA-Public Use
  Company Number: PHHY2011US14839

PATIENT
  Sex: Female
  Weight: 110.68 kg

DRUGS (15)
  1. EXJADE [Suspect]
     Indication: NEOPLASM
     Dosage: 2250 MG DAILY
     Route: 048
     Dates: start: 20110221, end: 20110225
  2. LASIX [Concomitant]
     Dosage: UNK
  3. COLACE [Concomitant]
     Dosage: UNK
  4. DACOGEN [Concomitant]
  5. LORTAB [Concomitant]
     Dosage: UNK
  6. PREVACID [Concomitant]
     Dosage: UNK
  7. OCUVITE LUTEIN [Concomitant]
     Dosage: UNK
  8. ALTACE [Concomitant]
     Dosage: UNK
  9. TRAVATAN [Concomitant]
     Dosage: UNK
  10. VITAMIN B-12 [Concomitant]
     Dosage: UNK
  11. VITAMIN B6 [Concomitant]
     Dosage: UNK
  12. HYDROCORTISONE [Concomitant]
     Dosage: UNK
  13. PROAIR HFA [Concomitant]
  14. EXJADE [Suspect]
     Indication: IRON OVERLOAD
  15. GLUCOVANCE [Concomitant]
     Dosage: UNK

REACTIONS (6)
  - NAUSEA [None]
  - HYPOGLYCAEMIA [None]
  - ABDOMINAL DISTENSION [None]
  - RASH ERYTHEMATOUS [None]
  - PYREXIA [None]
  - ABDOMINAL PAIN [None]
